FAERS Safety Report 24920387 (Version 1)
Quarter: 2025Q1

REPORT INFORMATION
  Report Type: Spontaneous
  Country: IT (occurrence: IT)
  Receive Date: 20250204
  Receipt Date: 20250204
  Transmission Date: 20250409
  Serious: No
  Sender: EXELIXIS
  Company Number: IT-EXELIXIS-CABO-24073856

PATIENT
  Age: 77 Year
  Sex: Female

DRUGS (2)
  1. CABOMETYX [Suspect]
     Active Substance: CABOZANTINIB S-MALATE
     Indication: Renal cancer
     Dosage: START OF THERAPY 02/10/2023 - 40 MG/DAY - THERAPY IN PROGRESS (40 MG,24 HR)
     Route: 048
     Dates: start: 20231002, end: 20231218
  2. NIVOLUMAB [Suspect]
     Active Substance: NIVOLUMAB
     Indication: Renal cancer
     Route: 042
     Dates: start: 20231017, end: 20231017

REACTIONS (1)
  - Blood corticotrophin increased [Recovering/Resolving]

NARRATIVE: CASE EVENT DATE: 20231106
